FAERS Safety Report 5792727-4 (Version None)
Quarter: 2008Q2

REPORT INFORMATION
  Report Type: 
  Country: None (occurrence: None)
  Receive Date: 20080624
  Receipt Date: 20080610
  Transmission Date: 20081010
  Serious: Yes (Death, Hospitalization)
  Sender: FDA-Public Use
  Company Number: 2008AL005345

PATIENT
  Age: 86 Year
  Sex: Female
  Weight: 56.6996 kg

DRUGS (14)
  1. DIGOXIN [Suspect]
     Dosage: 0.125 MG, DAILY, PO
     Route: 048
     Dates: start: 20070601
  2. POTASSIUM CHLORIDE [Concomitant]
  3. PREDNISONE TAB [Concomitant]
  4. MULTI-VITAMIN [Concomitant]
  5. LASIX [Concomitant]
  6. DOXEPIN HCL [Concomitant]
  7. ASPIRIN [Concomitant]
  8. REGLAN [Concomitant]
  9. MEGACE [Concomitant]
  10. TOPROL-XL [Concomitant]
  11. NORVASC [Concomitant]
  12. ALLOPURINOL [Concomitant]
  13. HYDRALAZINE HCL [Concomitant]
  14. COZAAR [Concomitant]

REACTIONS (6)
  - ANOREXIA [None]
  - BALANCE DISORDER [None]
  - DIZZINESS [None]
  - GAIT DISTURBANCE [None]
  - PANCREATIC CARCINOMA [None]
  - PNEUMONIA [None]
